FAERS Safety Report 15862172 (Version 5)
Quarter: 2019Q2

REPORT INFORMATION
  Report Type: Report from Study
  Country: JP (occurrence: JP)
  Receive Date: 20190124
  Receipt Date: 20190523
  Transmission Date: 20190711
  Serious: Yes (Death, Life-Threatening, Other)
  Sender: FDA-Public Use
  Company Number: JP-SAKK-2019SA016923AA

PATIENT
  Age: 67 Year
  Sex: Female
  Weight: 56.9 kg

DRUGS (25)
  1. AFLIBERCEPT [Suspect]
     Active Substance: AFLIBERCEPT
     Indication: COLON CANCER
     Dosage: 4 MG/KG
     Route: 041
     Dates: start: 20181217, end: 20181217
  2. AFLIBERCEPT [Suspect]
     Active Substance: AFLIBERCEPT
     Dosage: 4 MG/KG
     Route: 041
     Dates: start: 20180709, end: 20180709
  3. IRINOTECAN [Suspect]
     Active Substance: IRINOTECAN
     Indication: COLON CANCER
     Dosage: 100 MG/M2
     Route: 065
     Dates: start: 20181217, end: 20181217
  4. FLUOROURACIL. [Suspect]
     Active Substance: FLUOROURACIL
     Dosage: 2400 MG/M2
     Route: 041
     Dates: start: 20181217, end: 20181217
  5. FLUOROURACIL. [Suspect]
     Active Substance: FLUOROURACIL
     Dosage: 400 MG/M2 BOLUS
     Route: 040
     Dates: start: 20180709, end: 20180709
  6. AFLIBERCEPT [Suspect]
     Active Substance: AFLIBERCEPT
     Dosage: 4 MG/KG, QOW
     Route: 041
     Dates: start: 20180918, end: 20181015
  7. IRINOTECAN [Suspect]
     Active Substance: IRINOTECAN
     Dosage: 120 MG/M2, QOW
     Route: 065
     Dates: start: 20180806, end: 20180820
  8. FLUOROURACIL. [Suspect]
     Active Substance: FLUOROURACIL
     Dosage: 400 MG/M2 BOLUS, QOW
     Route: 040
     Dates: start: 20180806, end: 20180820
  9. FLUOROURACIL. [Suspect]
     Active Substance: FLUOROURACIL
     Dosage: 2400 MG/M2, QOW
     Route: 041
     Dates: start: 20180806, end: 20180820
  10. AFLIBERCEPT [Suspect]
     Active Substance: AFLIBERCEPT
     Dosage: 4 MG/KG, QOW
     Route: 041
     Dates: start: 20180806, end: 20180820
  11. FLUOROURACIL. [Suspect]
     Active Substance: FLUOROURACIL
     Indication: COLON CANCER
     Dosage: 400 MG/M2
     Route: 040
     Dates: start: 20181217, end: 20181217
  12. FLUOROURACIL. [Suspect]
     Active Substance: FLUOROURACIL
     Dosage: 2400 MG/M2, QOW
     Route: 041
     Dates: start: 20180918, end: 20181015
  13. CALCIUM LEVOFOLINATE [Suspect]
     Active Substance: LEVOLEUCOVORIN CALCIUM
     Indication: COLON CANCER
     Dosage: 200 MG/M2
     Route: 065
     Dates: start: 20181217, end: 20181217
  14. IRINOTECAN [Suspect]
     Active Substance: IRINOTECAN
     Dosage: 100 MG/M2, QOW
     Route: 065
     Dates: start: 20181112, end: 20181126
  15. FLUOROURACIL. [Suspect]
     Active Substance: FLUOROURACIL
     Dosage: 2400 MG/M2
     Route: 041
     Dates: start: 20180709, end: 20180709
  16. FLUOROURACIL. [Suspect]
     Active Substance: FLUOROURACIL
     Dosage: 400 MG/M2 BOLUS, QOW
     Route: 040
     Dates: start: 20181112, end: 20181126
  17. AFLIBERCEPT [Suspect]
     Active Substance: AFLIBERCEPT
     Dosage: 4 MG/KG, QOW
     Route: 041
     Dates: start: 20181112, end: 20181126
  18. CALCIUM LEVOFOLINATE [Suspect]
     Active Substance: LEVOLEUCOVORIN CALCIUM
     Dosage: 200 MG/M2, QOW
     Route: 065
     Dates: start: 20180806, end: 20180820
  19. CALCIUM LEVOFOLINATE [Suspect]
     Active Substance: LEVOLEUCOVORIN CALCIUM
     Dosage: 200 MG/M2, QOW
     Route: 065
     Dates: start: 20181112, end: 20181126
  20. IRINOTECAN [Suspect]
     Active Substance: IRINOTECAN
     Dosage: 100 MG/M2
     Route: 065
     Dates: start: 20181015, end: 20181015
  21. CALCIUM LEVOFOLINATE [Suspect]
     Active Substance: LEVOLEUCOVORIN CALCIUM
     Dosage: 200 MG/M2
     Route: 065
     Dates: start: 20180709, end: 20180709
  22. CALCIUM LEVOFOLINATE [Suspect]
     Active Substance: LEVOLEUCOVORIN CALCIUM
     Dosage: 200 MG/M2, QOW
     Route: 065
     Dates: start: 20180918, end: 20181015
  23. FLUOROURACIL. [Suspect]
     Active Substance: FLUOROURACIL
     Dosage: 400 MG/M2 BOLUS, QOW
     Route: 040
     Dates: start: 20180918, end: 20181015
  24. FLUOROURACIL. [Suspect]
     Active Substance: FLUOROURACIL
     Dosage: 2400 MG/M2, QOW
     Route: 041
     Dates: start: 20181112, end: 20181126
  25. IRINOTECAN [Suspect]
     Active Substance: IRINOTECAN
     Dosage: 150 MG/M2
     Route: 065
     Dates: start: 20180709, end: 20180709

REACTIONS (2)
  - Gastrointestinal perforation [Fatal]
  - Diarrhoea [Recovering/Resolving]

NARRATIVE: CASE EVENT DATE: 20181223
